FAERS Safety Report 23674810 (Version 1)
Quarter: 2024Q1

REPORT INFORMATION
  Report Type: Spontaneous
  Country: RU (occurrence: RU)
  Receive Date: 20240326
  Receipt Date: 20240326
  Transmission Date: 20240410
  Serious: Yes (Hospitalization, Other)
  Sender: FDA-Public Use
  Company Number: RU-Merck Healthcare KGaA-2024014742

PATIENT
  Age: 54 Year
  Sex: Female

DRUGS (2)
  1. EUTHYROX [Suspect]
     Active Substance: LEVOTHYROXINE SODIUM
     Indication: Autoimmune thyroiditis
     Dates: start: 20240208
  2. OMEGA 3 [COLECALCIFEROL;DOCOSAHEXAENOIC ACID;EICOSAPENTAENOIC ACID;RET [Concomitant]
     Indication: Product used for unknown indication

REACTIONS (14)
  - Myocardial fibrosis [Unknown]
  - Dysbiosis [Unknown]
  - Coordination abnormal [Unknown]
  - Altered state of consciousness [Unknown]
  - Extrasystoles [Unknown]
  - Hypertension [Unknown]
  - Arrhythmia [Unknown]
  - Blood thyroid stimulating hormone increased [Unknown]
  - Drug intolerance [Unknown]
  - Reaction to excipient [Unknown]
  - Dyspepsia [Unknown]
  - Tachycardia [Unknown]
  - Product quality issue [Unknown]
  - Off label use [Unknown]
